FAERS Safety Report 24342085 (Version 1)
Quarter: 2024Q3

REPORT INFORMATION
  Report Type: Spontaneous
  Country: PL (occurrence: PL)
  Receive Date: 20240920
  Receipt Date: 20240920
  Transmission Date: 20241017
  Serious: Yes (Death, Hospitalization, Other)
  Sender: Haleon PLC
  Company Number: PL-HALEON-2197032

PATIENT
  Age: 30 Year
  Sex: Male

DRUGS (18)
  1. FLUTICASONE PROPIONATE [Suspect]
     Active Substance: FLUTICASONE PROPIONATE
     Indication: Chronic graft versus host disease
     Route: 065
  2. MYCOPHENOLATE MOFETIL [Suspect]
     Active Substance: MYCOPHENOLATE MOFETIL
     Indication: Graft versus host disease
     Route: 065
  3. MONTELUKAST [Suspect]
     Active Substance: MONTELUKAST SODIUM
     Indication: Graft versus host disease
     Route: 065
  4. MONTELUKAST [Suspect]
     Active Substance: MONTELUKAST SODIUM
     Indication: Lung disorder
  5. METHOTREXATE [Suspect]
     Active Substance: METHOTREXATE
     Indication: Prophylaxis against graft versus host disease
     Route: 065
  6. METHOTREXATE [Suspect]
     Active Substance: METHOTREXATE
     Indication: Graft versus host disease
  7. MELPHALAN [Concomitant]
     Active Substance: MELPHALAN
     Indication: Product used for unknown indication
     Dosage: CONDITIONING
     Route: 065
  8. METOPROLOL [Suspect]
     Active Substance: METOPROLOL
     Indication: Product used for unknown indication
     Dosage: UNK (23.75 MG 2X1TAB)
     Route: 065
  9. AZITHROMYCIN [Suspect]
     Active Substance: AZITHROMYCIN
     Indication: Product used for unknown indication
     Dosage: 500 MG
     Route: 065
  10. VITAMIN D [Suspect]
     Active Substance: VITAMIN D NOS
     Indication: Product used for unknown indication
     Dosage: UNK (2000 U 1X1 TAB)
     Route: 065
  11. CYCLOSPORINE [Suspect]
     Active Substance: CYCLOSPORINE
     Indication: Prophylaxis against graft versus host disease
     Route: 065
  12. CANDESARTAN [Suspect]
     Active Substance: CANDESARTAN
     Indication: Product used for unknown indication
     Dosage: 800 MG (1/2 TAB)
     Route: 065
  13. CANDESARTAN [Suspect]
     Active Substance: CANDESARTAN
     Dosage: 8 MG (1/2 TAB)
     Route: 065
  14. FLUDARABINE [Concomitant]
     Active Substance: FLUDARABINE PHOSPHATE
     Indication: Product used for unknown indication
     Dosage: CONDITIONING
     Route: 065
  15. METHYLPREDNISOLONE [Suspect]
     Active Substance: METHYLPREDNISOLONE
     Indication: Graft versus host disease
     Route: 048
  16. TORSEMIDE [Suspect]
     Active Substance: TORSEMIDE
     Indication: Product used for unknown indication
     Dosage: 100 MG (2X1 TAB)
     Route: 065
  17. TORSEMIDE [Suspect]
     Active Substance: TORSEMIDE
     Dosage: 10 MG (2X1 TAB) (1 TAB IN MORNING)
     Route: 065
  18. SACUBITRIL\VALSARTAN [Suspect]
     Active Substance: SACUBITRIL\VALSARTAN
     Indication: Product used for unknown indication
     Dosage: UNK (24/26MG 2X1TAB)
     Route: 065

REACTIONS (18)
  - Pneumonia [Fatal]
  - Lichenoid keratosis [Fatal]
  - Ejection fraction abnormal [Unknown]
  - Cough [Unknown]
  - Drug ineffective for unapproved indication [Unknown]
  - Dyspnoea [Fatal]
  - Product use in unapproved indication [Unknown]
  - Pleural effusion [Fatal]
  - Mastication disorder [Fatal]
  - General physical health deterioration [Fatal]
  - Pulmonary congestion [Unknown]
  - Disease progression [Fatal]
  - Exercise tolerance decreased [Unknown]
  - Weight decreased [Fatal]
  - Chronic graft versus host disease [Fatal]
  - Erythema [Fatal]
  - Heart rate increased [Unknown]
  - Condition aggravated [Fatal]
